FAERS Safety Report 4632973-6 (Version None)
Quarter: 2005Q2

REPORT INFORMATION
  Report Type: 
  Country: None (occurrence: None)
  Receive Date: 20050412
  Receipt Date: 20040701
  Transmission Date: 20051028
  Serious: Yes (Disabling)
  Sender: FDA-Public Use
  Company Number: JP-MERCK-0407USA00422

PATIENT
  Age: 80 Year
  Sex: Female

DRUGS (1)
  1. STROMECTOL [Suspect]
     Indication: ACARODERMATITIS
     Route: 048
     Dates: start: 20040625, end: 20040625

REACTIONS (1)
  - BEDRIDDEN [None]
